FAERS Safety Report 23308083 (Version 2)
Quarter: 2024Q1

REPORT INFORMATION
  Report Type: Spontaneous
  Country: IT (occurrence: IT)
  Receive Date: 20231218
  Receipt Date: 20240103
  Transmission Date: 20240410
  Serious: Yes (Hospitalization, Other)
  Sender: FDA-Public Use
  Company Number: None

PATIENT
  Age: 40 Year
  Sex: Female

DRUGS (6)
  1. TOPAMAX [Suspect]
     Active Substance: TOPIRAMATE
     Indication: Epilepsy
     Dosage: 200 MG, BID (DOSAGE 200 MG TWICE DAILY)
     Route: 048
  2. BRIVARACETAM [Suspect]
     Active Substance: BRIVARACETAM
     Indication: Epilepsy
     Dosage: 100 MG, QD (100 MG DUE VOLTE/DIE )
     Route: 065
  3. KESIMPTA [Suspect]
     Active Substance: OFATUMUMAB
     Indication: Multiple sclerosis
     Dosage: INIZIATO KESIMPTA CON 3 SOMMINISTRAZIONI IL GIORNO 20/7, 27/7, 3/8
     Route: 058
     Dates: start: 20230720
  4. KESIMPTA [Suspect]
     Active Substance: OFATUMUMAB
     Dosage: INIZIATO KESIMPTA CON 3 SOMMINISTRAZIONI IL GIORNO 20/7, 27/7, 3/8
     Route: 058
     Dates: start: 20230803
  5. KESIMPTA [Suspect]
     Active Substance: OFATUMUMAB
     Dosage: INIZIATO KESIMPTA CON 3 SOMMINISTRAZIONI IL GIORNO 20/7, 27/7, 3/8
     Route: 058
     Dates: start: 20230727
  6. PHENOBARBITAL [Suspect]
     Active Substance: PHENOBARBITAL
     Indication: Epilepsy
     Dosage: 100 MG, QD
     Route: 065

REACTIONS (3)
  - Gingivitis ulcerative [Recovered/Resolved]
  - Febrile neutropenia [Recovered/Resolved]
  - Neutropenic sepsis [Unknown]

NARRATIVE: CASE EVENT DATE: 20230829
